FAERS Safety Report 5481438-0 (Version None)
Quarter: 2007Q4

REPORT INFORMATION
  Report Type: 
  Country: None (occurrence: None)
  Receive Date: 20071010
  Receipt Date: 20071002
  Transmission Date: 20080405
  Serious: Yes (Other)
  Sender: FDA-Public Use
  Company Number: B0490231A

PATIENT
  Age: 52 Year
  Sex: Female

DRUGS (1)
  1. FLUTIDE NASAL [Suspect]

REACTIONS (1)
  - NASAL SEPTUM PERFORATION [None]
